FAERS Safety Report 5582015-3 (Version None)
Quarter: 2008Q1

REPORT INFORMATION
  Report Type: 
  Country: None (occurrence: None)
  Receive Date: 20080104
  Receipt Date: 20071227
  Transmission Date: 20080703
  Serious: Yes (Hospitalization)
  Sender: FDA-Public Use
  Company Number: PT-ABBOTT-07P-130-0422254-00

PATIENT
  Age: 21 Month
  Sex: Male

DRUGS (3)
  1. DEPAKINE ORAL SOLUTION [Suspect]
     Indication: EPILEPSY
     Route: 048
     Dates: start: 20071010, end: 20071010
  2. TOPIRAMATE [Concomitant]
     Indication: DRUG USE FOR UNKNOWN INDICATION
     Route: 048
  3. CLOBAZAM [Concomitant]
     Indication: DRUG USE FOR UNKNOWN INDICATION
     Route: 048

REACTIONS (8)
  - ACCIDENTAL OVERDOSE [None]
  - DEPRESSED LEVEL OF CONSCIOUSNESS [None]
  - DRUG DISPENSING ERROR [None]
  - FATIGUE [None]
  - HEPATIC FUNCTION ABNORMAL [None]
  - JAUNDICE [None]
  - SOMNOLENCE [None]
  - UNRESPONSIVE TO STIMULI [None]
